FAERS Safety Report 25774187 (Version 1)
Quarter: 2025Q3

REPORT INFORMATION
  Report Type: Report from Study
  Country: US (occurrence: US)
  Receive Date: 20250908
  Receipt Date: 20250908
  Transmission Date: 20251021
  Serious: Yes (Hospitalization, Other)
  Sender: MERCK SHARP & DOHME LLC
  Company Number: US-009507513-2408USA003924

PATIENT
  Sex: Female
  Weight: 77.111 kg

DRUGS (34)
  1. WINREVAIR [Suspect]
     Active Substance: SOTATERCEPT-CSRK
     Indication: Pulmonary arterial hypertension
     Route: 058
     Dates: start: 202506
  2. WINREVAIR [Suspect]
     Active Substance: SOTATERCEPT-CSRK
  3. WINREVAIR [Suspect]
     Active Substance: SOTATERCEPT-CSRK
  4. WINREVAIR [Suspect]
     Active Substance: SOTATERCEPT-CSRK
  5. WINREVAIR [Suspect]
     Active Substance: SOTATERCEPT-CSRK
  6. WINREVAIR [Suspect]
     Active Substance: SOTATERCEPT-CSRK
  7. WINREVAIR [Suspect]
     Active Substance: SOTATERCEPT-CSRK
  8. WINREVAIR [Suspect]
     Active Substance: SOTATERCEPT-CSRK
  9. WINREVAIR [Suspect]
     Active Substance: SOTATERCEPT-CSRK
  10. WINREVAIR [Suspect]
     Active Substance: SOTATERCEPT-CSRK
  11. WINREVAIR [Suspect]
     Active Substance: SOTATERCEPT-CSRK
  12. WINREVAIR [Suspect]
     Active Substance: SOTATERCEPT-CSRK
  13. WINREVAIR [Suspect]
     Active Substance: SOTATERCEPT-CSRK
  14. WINREVAIR [Suspect]
     Active Substance: SOTATERCEPT-CSRK
  15. WINREVAIR [Suspect]
     Active Substance: SOTATERCEPT-CSRK
  16. WINREVAIR [Suspect]
     Active Substance: SOTATERCEPT-CSRK
  17. WINREVAIR [Suspect]
     Active Substance: SOTATERCEPT-CSRK
  18. WINREVAIR [Suspect]
     Active Substance: SOTATERCEPT-CSRK
  19. WINREVAIR [Suspect]
     Active Substance: SOTATERCEPT-CSRK
  20. WINREVAIR [Suspect]
     Active Substance: SOTATERCEPT-CSRK
  21. WINREVAIR [Suspect]
     Active Substance: SOTATERCEPT-CSRK
  22. WINREVAIR [Suspect]
     Active Substance: SOTATERCEPT-CSRK
  23. WINREVAIR [Suspect]
     Active Substance: SOTATERCEPT-CSRK
  24. WINREVAIR [Suspect]
     Active Substance: SOTATERCEPT-CSRK
  25. WINREVAIR [Suspect]
     Active Substance: SOTATERCEPT-CSRK
  26. WINREVAIR [Suspect]
     Active Substance: SOTATERCEPT-CSRK
  27. WINREVAIR [Suspect]
     Active Substance: SOTATERCEPT-CSRK
  28. WINREVAIR [Suspect]
     Active Substance: SOTATERCEPT-CSRK
  29. TYVASO DPI [Concomitant]
     Active Substance: TREPROSTINIL
  30. ORENITRAM [Concomitant]
     Active Substance: TREPROSTINIL
  31. UPTRAVI [Suspect]
     Active Substance: SELEXIPAG
     Route: 048
     Dates: start: 2025
  32. UPTRAVI [Suspect]
     Active Substance: SELEXIPAG
     Dosage: 600 UG BID
     Route: 048
     Dates: end: 20250519
  33. UPTRAVI [Suspect]
     Active Substance: SELEXIPAG
     Dosage: CURRENT DOSAGE: TAKE TABLETS BY MOUTH 2 TIMES A DAY AND DECREASE BY 200MCG 2 TIMES A DAY EVERY 7 ...
     Route: 048
  34. YUTREPIA [Concomitant]
     Active Substance: TREPROSTINIL SODIUM

REACTIONS (13)
  - Impaired gastric emptying [Unknown]
  - Product dose omission issue [Unknown]
  - Fall [Unknown]
  - Wound haemorrhage [Unknown]
  - Dehydration [Recovering/Resolving]
  - Head injury [Unknown]
  - Scleroderma [Unknown]
  - Dyspnoea [Unknown]
  - Dyspnoea exertional [Unknown]
  - Pulmonary mass [Unknown]
  - Headache [Recovered/Resolved]
  - Emotional disorder [Not Recovered/Not Resolved]
  - Headache [Recovering/Resolving]

NARRATIVE: CASE EVENT DATE: 20240101
